FAERS Safety Report 24758991 (Version 2)
Quarter: 2025Q1

REPORT INFORMATION
  Report Type: Spontaneous
  Country: FR (occurrence: FR)
  Receive Date: 20241220
  Receipt Date: 20250113
  Transmission Date: 20250408
  Serious: Yes (Death)
  Sender: SANOFI AVENTIS
  Company Number: None

PATIENT
  Age: 0 Day
  Sex: Female

DRUGS (6)
  1. DOLIPRANE [Suspect]
     Active Substance: ACETAMINOPHEN
     Indication: Pain
     Route: 064
     Dates: start: 20241115
  2. RIVAROXABAN [Suspect]
     Active Substance: RIVAROXABAN
     Indication: Wrong product administered
     Route: 064
     Dates: start: 20241125, end: 20241125
  3. IRBESARTAN [Suspect]
     Active Substance: IRBESARTAN
     Indication: Wrong product administered
     Route: 064
     Dates: start: 20241125, end: 20241125
  4. FERROUS SULFATE [Suspect]
     Active Substance: FERROUS SULFATE
     Indication: Anaemia
     Route: 064
     Dates: start: 20241115
  5. FOLIC ACID [Suspect]
     Active Substance: FOLIC ACID
     Indication: Prophylaxis
     Dosage: 5 MG, QD
     Route: 064
     Dates: start: 20241115
  6. PHLOROGLUCINOL\1,3,5-TRIMETHOXYBENZENE [Suspect]
     Active Substance: PHLOROGLUCINOL\1,3,5-TRIMETHOXYBENZENE
     Indication: Threatened labour
     Route: 064
     Dates: start: 20241108

REACTIONS (3)
  - Premature baby [Fatal]
  - Wrong product administered [Fatal]
  - Exposure during pregnancy [Fatal]

NARRATIVE: CASE EVENT DATE: 20241130
